FAERS Safety Report 9135584 (Version 1)
Quarter: 2013Q1

REPORT INFORMATION
  Report Type: Spontaneous
  Country: US (occurrence: US)
  Receive Date: 20130304
  Receipt Date: 20130304
  Transmission Date: 20140127
  Serious: No
  Sender: FDA-Public Use
  Company Number: US-ENDO PHARMACEUTICALS INC.-PERC20120131

PATIENT
  Sex: Male

DRUGS (2)
  1. PERCOCET [Suspect]
     Indication: PAIN
     Dosage: 80/2600MG
     Route: 048
     Dates: start: 20120821
  2. ENDOCET [Suspect]
     Indication: PAIN
     Dosage: 80/2600MG
     Route: 048
     Dates: start: 201208, end: 201208

REACTIONS (3)
  - Bladder pain [Unknown]
  - Drug effect decreased [Not Recovered/Not Resolved]
  - Drug ineffective [Recovered/Resolved]
